FAERS Safety Report 6870140-6 (Version None)
Quarter: 2010Q3

REPORT INFORMATION
  Report Type: 
  Country: None (occurrence: None)
  Receive Date: 20100722
  Receipt Date: 20100714
  Transmission Date: 20110219
  Serious: Yes (Hospitalization)
  Sender: FDA-Public Use
  Company Number: US-AMGEN-QUU424506

PATIENT
  Sex: Female

DRUGS (1)
  1. ENBREL [Suspect]
     Indication: RHEUMATOID ARTHRITIS
     Route: 058
     Dates: start: 20071207, end: 20091201

REACTIONS (5)
  - COMPLICATION OF DELIVERY [None]
  - COMPLICATION OF PREGNANCY [None]
  - LABOUR COMPLICATION [None]
  - PROCEDURAL NAUSEA [None]
  - PROCEDURAL VOMITING [None]
